FAERS Safety Report 15518071 (Version 2)
Quarter: 2019Q2

REPORT INFORMATION
  Report Type: Spontaneous
  Country: HR (occurrence: HR)
  Receive Date: 20181017
  Receipt Date: 20190617
  Transmission Date: 20190711
  Serious: Yes (Hospitalization, Other)
  Sender: FDA-Public Use
  Company Number: HR-PFIZER INC-2018415924

PATIENT
  Age: 59 Year
  Sex: Female

DRUGS (21)
  1. FOLINIC ACID [Suspect]
     Active Substance: LEUCOVORIN
     Indication: RECTOSIGMOID CANCER METASTATIC
     Dosage: UNK (DOSE REDUCTION)
     Route: 065
     Dates: start: 2017, end: 2017
  2. FOLINIC ACID [Suspect]
     Active Substance: LEUCOVORIN
     Dosage: UNK (REGULAR IN 2.5-3 WEEK)
     Route: 065
     Dates: start: 2017, end: 2018
  3. 5 FU [Suspect]
     Active Substance: FLUOROURACIL
     Dosage: UNK
     Route: 065
     Dates: start: 201706, end: 2017
  4. IRINOTECAN HCL [Suspect]
     Active Substance: IRINOTECAN HYDROCHLORIDE
     Dosage: UNK (REGULAR IN 2.5-3 WEEK)
     Route: 065
     Dates: start: 2017, end: 2018
  5. IRINOTECAN HCL [Suspect]
     Active Substance: IRINOTECAN HYDROCHLORIDE
     Dosage: UNK
     Route: 065
     Dates: start: 201902, end: 201903
  6. VECTIBIX [Suspect]
     Active Substance: PANITUMUMAB
     Indication: RECTOSIGMOID CANCER METASTATIC
     Dosage: UNK (DOSE REDUCTION)
     Route: 065
     Dates: start: 2017, end: 2017
  7. VECTIBIX [Suspect]
     Active Substance: PANITUMUMAB
     Dosage: UNK (REGULAR IN 2.5-3 WEEK)
     Route: 065
     Dates: start: 2017, end: 2018
  8. FOLINIC ACID [Suspect]
     Active Substance: LEUCOVORIN
     Dosage: UNK
     Route: 065
     Dates: start: 201706, end: 2017
  9. IRINOTECAN HCL [Suspect]
     Active Substance: IRINOTECAN HYDROCHLORIDE
     Dosage: UNK
     Route: 065
     Dates: start: 201706, end: 2018
  10. IRINOTECAN HCL [Suspect]
     Active Substance: IRINOTECAN HYDROCHLORIDE
     Dosage: UNK
     Route: 065
     Dates: start: 201808, end: 201811
  11. VECTIBIX [Suspect]
     Active Substance: PANITUMUMAB
     Dosage: UNK
     Route: 065
     Dates: start: 201808, end: 201811
  12. FOLINIC ACID [Suspect]
     Active Substance: LEUCOVORIN
     Dosage: UNK
     Route: 065
     Dates: start: 201808, end: 201811
  13. 5 FU [Suspect]
     Active Substance: FLUOROURACIL
     Indication: RECTOSIGMOID CANCER METASTATIC
     Dosage: UNK (DOSE REDUCTION)
     Route: 065
     Dates: start: 2017, end: 2017
  14. 5 FU [Suspect]
     Active Substance: FLUOROURACIL
     Dosage: UNK
     Route: 065
     Dates: start: 201808, end: 201811
  15. 5 FU [Suspect]
     Active Substance: FLUOROURACIL
     Dosage: UNK
     Route: 065
     Dates: start: 201902, end: 201903
  16. FILGRASTIM [Suspect]
     Active Substance: FILGRASTIM
     Indication: PROPHYLAXIS
     Dosage: UNK
     Route: 065
     Dates: start: 2017
  17. VECTIBIX [Suspect]
     Active Substance: PANITUMUMAB
     Dosage: UNK
     Route: 065
     Dates: start: 201706, end: 2017
  18. VECTIBIX [Suspect]
     Active Substance: PANITUMUMAB
     Dosage: UNK
     Route: 065
     Dates: start: 201902, end: 201903
  19. IRINOTECAN HCL [Suspect]
     Active Substance: IRINOTECAN HYDROCHLORIDE
     Indication: RECTOSIGMOID CANCER METASTATIC
     Dosage: UNK (DOSE REDUCTION)
     Route: 065
     Dates: start: 2017, end: 2017
  20. CAPECITABINE. [Suspect]
     Active Substance: CAPECITABINE
     Indication: RECTOSIGMOID CANCER METASTATIC
     Dosage: UNK
     Route: 065
     Dates: start: 201806, end: 201806
  21. FOLINIC ACID [Suspect]
     Active Substance: LEUCOVORIN
     Dosage: UNK
     Route: 065
     Dates: start: 201902, end: 201903

REACTIONS (6)
  - Skin toxicity [Unknown]
  - Malignant neoplasm progression [Unknown]
  - Palmar-plantar erythrodysaesthesia syndrome [Unknown]
  - Weight increased [Unknown]
  - Neutropenia [Unknown]
  - Mucosal inflammation [Unknown]

NARRATIVE: CASE EVENT DATE: 2017
